FAERS Safety Report 8901542 (Version 3)
Quarter: 2014Q1

REPORT INFORMATION
  Report Type: Spontaneous
  Country: US (occurrence: US)
  Receive Date: 20121108
  Receipt Date: 20140117
  Transmission Date: 20141002
  Serious: Yes (Disabling, Other)
  Sender: FDA-Public Use
  Company Number: US-ASTRAZENECA-2012SE82497

PATIENT
  Age: 57 Year
  Sex: Female
  Weight: 58.1 kg

DRUGS (32)
  1. NEXIUM [Suspect]
     Indication: GASTROOESOPHAGEAL REFLUX DISEASE
     Route: 048
  2. NEXIUM [Suspect]
     Indication: GASTROOESOPHAGEAL REFLUX DISEASE
     Route: 048
     Dates: start: 2012
  3. BACLOFEN [Concomitant]
     Indication: MUSCLE SPASMS
     Route: 048
  4. BACLOFEN [Concomitant]
     Indication: MULTIPLE SCLEROSIS
     Route: 048
  5. BACLOFEN [Concomitant]
     Indication: MUSCLE SPASMS
     Route: 048
     Dates: start: 2005
  6. BACLOFEN [Concomitant]
     Indication: MULTIPLE SCLEROSIS
     Route: 048
     Dates: start: 2005
  7. BUDEPRION XL [Concomitant]
     Indication: SMOKING CESSATION THERAPY
     Route: 048
     Dates: start: 2004
  8. PREMARIN [Concomitant]
     Indication: HYSTERECTOMY
     Route: 048
     Dates: start: 1995
  9. PREMARIN [Concomitant]
     Indication: HYSTERECTOMY
     Dosage: 0.065
  10. CELEBREX [Concomitant]
     Indication: INFLAMMATION
     Route: 048
     Dates: start: 2011
  11. CELEBREX [Concomitant]
     Indication: INFLAMMATION
  12. TRAMADOL [Concomitant]
     Indication: PAIN
     Route: 048
     Dates: start: 201304
  13. TAMSULOSIN [Concomitant]
     Indication: BLADDER DISORDER
     Route: 048
     Dates: start: 2010
  14. ELMIRON [Concomitant]
     Indication: BLADDER DISORDER
     Route: 048
  15. ELMIRON [Concomitant]
     Indication: BLADDER DISORDER
     Route: 048
     Dates: start: 2010
  16. GABAPENTIN [Concomitant]
     Indication: SCIATICA
     Route: 048
     Dates: start: 201309
  17. VALACYCLOVIR [Concomitant]
  18. SULFAMETH/TRIMETHOPRIM [Concomitant]
     Dosage: 800, AS NEEDED
  19. SYNVISCO [Concomitant]
     Dosage: ONE INJECTION 8/15 RIGHT KNEE
  20. STEROID INJECTION [Concomitant]
     Dosage: 9/18 RIGHT KNEE
  21. OMEGA 3 FISH OIL [Concomitant]
     Dosage: DAILY
  22. CENTRIUM SILVER [Concomitant]
  23. VITAMIN D [Concomitant]
  24. VITAMIN B COMPLEX [Concomitant]
     Dosage: DAILY
  25. MAGNESIUM OXIDE [Concomitant]
  26. CALCIUM [Concomitant]
  27. ADVIL [Concomitant]
     Indication: PAIN
     Dosage: AS NEEDED
  28. WELLBUTRIN XL [Concomitant]
  29. FLOMAX [Concomitant]
  30. BACTRIM [Concomitant]
  31. AVONEX [Concomitant]
     Indication: MULTIPLE SCLEROSIS
     Dosage: ONCE WEEKLY
     Dates: start: 2002
  32. PHENAZOPYRIDINE [Concomitant]

REACTIONS (13)
  - Peroneal nerve palsy [Unknown]
  - Fall [Unknown]
  - Meniscus injury [Unknown]
  - Musculoskeletal pain [Unknown]
  - Mobility decreased [Unknown]
  - Effusion [Unknown]
  - Arthritis [Unknown]
  - Gastrooesophageal reflux disease [Unknown]
  - Gastrooesophageal reflux disease [Unknown]
  - Stress [Unknown]
  - Arthralgia [Unknown]
  - Off label use [Unknown]
  - Drug dose omission [Unknown]
